FAERS Safety Report 15608841 (Version 1)
Quarter: 2018Q4

REPORT INFORMATION
  Report Type: Report from Study
  Country: None (occurrence: US)
  Receive Date: 20181112
  Receipt Date: 20181112
  Transmission Date: 20190205
  Serious: Yes (Other)
  Sender: FDA-Public Use
  Company Number: US-BAUSCH-BL-2018-016919

PATIENT
  Sex: Female

DRUGS (3)
  1. SILIQ [Suspect]
     Active Substance: BRODALUMAB
     Dosage: EVERY 2 WEEKS
     Route: 058
     Dates: start: 20180514
  2. SILIQ [Suspect]
     Active Substance: BRODALUMAB
     Indication: PSORIASIS
     Dosage: WEEKLY FOR THE FIRST 4 WEEKS
     Route: 058
     Dates: start: 201804
  3. TRINESSA [Concomitant]
     Active Substance: ETHINYL ESTRADIOL\NORGESTIMATE
     Indication: CHEMICAL CONTRACEPTION
     Dosage: 0.18/0.215
     Route: 065

REACTIONS (3)
  - Depression [Recovered/Resolved]
  - Incorrect dose administered [Not Recovered/Not Resolved]
  - Suicidal ideation [Recovered/Resolved]

NARRATIVE: CASE EVENT DATE: 2018
